FAERS Safety Report 4965411-4 (Version None)
Quarter: 2006Q2

REPORT INFORMATION
  Report Type: 
  Country: None (occurrence: None)
  Receive Date: 20060406
  Receipt Date: 20050930
  Transmission Date: 20061013
  Serious: Yes (Hospitalization, Disabling, Other)
  Sender: FDA-Public Use
  Company Number: US-MERCK-0510USA01455

PATIENT
  Age: 53 Year
  Sex: Female
  Weight: 84 kg

DRUGS (1)
  1. VIOXX [Suspect]
     Indication: ARTHRALGIA
     Route: 048
     Dates: start: 19990501, end: 20040901

REACTIONS (15)
  - BLOOD PRESSURE INCREASED [None]
  - CARDIAC DISORDER [None]
  - CARDIOVASCULAR DISORDER [None]
  - CEREBROVASCULAR ACCIDENT [None]
  - DEPRESSION [None]
  - HEPATOCELLULAR DAMAGE [None]
  - HYPERSENSITIVITY [None]
  - INTERVERTEBRAL DISC DEGENERATION [None]
  - LIVER DISORDER [None]
  - MULTI-ORGAN DISORDER [None]
  - MYOCARDIAL INFARCTION [None]
  - PAIN [None]
  - PULMONARY EMBOLISM [None]
  - RENAL DISORDER [None]
  - SPINAL COLUMN STENOSIS [None]
